FAERS Safety Report 8046348-3 (Version None)
Quarter: 2012Q1

REPORT INFORMATION
  Report Type: 
  Country: None (occurrence: None)
  Receive Date: 20120113
  Receipt Date: 20120106
  Transmission Date: 20120608
  Serious: No
  Sender: FDA-Public Use
  Company Number: US-PFIZER INC-2011315432

PATIENT
  Sex: Female
  Weight: 61.678 kg

DRUGS (5)
  1. CELEBREX [Suspect]
  2. LISINOPRIL [Concomitant]
     Indication: HYPERTENSION
     Dosage: 200 MG, 2X/DAY
  3. ATENOLOL [Concomitant]
     Indication: HYPERTENSION
     Dosage: 25 MG, 2X/DAY
  4. CELEBREX [Suspect]
     Indication: ARTHRITIS
  5. CELEBREX [Suspect]
     Indication: LIMB DISCOMFORT
     Dosage: 100 MG, 2X/DAY
     Dates: start: 20111201

REACTIONS (3)
  - DRUG INEFFECTIVE [None]
  - FEELING ABNORMAL [None]
  - BLOOD URIC ACID INCREASED [None]
